FAERS Safety Report 8366507-X (Version None)
Quarter: 2012Q2

REPORT INFORMATION
  Report Type: 
  Country: None (occurrence: None)
  Receive Date: 20120517
  Receipt Date: 20120507
  Transmission Date: 20120825
  Serious: Yes (Other)
  Sender: FDA-Public Use
  Company Number: JP-VALEANT-2012VX002138

PATIENT

DRUGS (4)
  1. DEXAMETHASONE [Concomitant]
     Route: 065
  2. FLUOROURACIL [Suspect]
     Dosage: DOSE UNIT:600
     Route: 042
  3. CISPLATIN [Suspect]
     Dosage: DOSE UNIT:70
     Route: 042
  4. DOCETAXEL [Suspect]
     Dosage: DOSE UNIT:60
     Route: 042

REACTIONS (1)
  - FATIGUE [None]
